FAERS Safety Report 12597251 (Version 3)
Quarter: 2023Q4

REPORT INFORMATION
  Report Type: Spontaneous
  Country: US (occurrence: US)
  Receive Date: 20160727
  Receipt Date: 20231214
  Transmission Date: 20240109
  Serious: Yes (Hospitalization, Other)
  Sender: FDA-Public Use
  Company Number: US-AUROBINDO-AUR-APL-2016-09810

PATIENT
  Age: 61 Year
  Sex: Female

DRUGS (14)
  1. OLANZAPINE [Interacting]
     Active Substance: OLANZAPINE
     Indication: Prophylaxis of nausea and vomiting
     Dosage: 10 MG, DAILY
     Route: 048
  2. OLANZAPINE [Interacting]
     Active Substance: OLANZAPINE
     Indication: Nausea
     Dosage: 10 MILLIGRAM
     Route: 048
  3. OLANZAPINE [Interacting]
     Active Substance: OLANZAPINE
     Dosage: 10 MILLIGRAM
     Route: 048
  4. LORAZEPAM [Interacting]
     Active Substance: LORAZEPAM
     Indication: Nausea
     Dosage: 1 MG, 2-3 TIMES DAILY
     Route: 048
  5. LORAZEPAM [Interacting]
     Active Substance: LORAZEPAM
     Indication: Anxiety
     Dosage: 1 MG, UNK
     Route: 042
  6. LORAZEPAM [Interacting]
     Active Substance: LORAZEPAM
     Indication: Premedication
     Dosage: 2-3 TIMES DAILY
     Route: 065
  7. LORAZEPAM [Interacting]
     Active Substance: LORAZEPAM
     Dosage: 2-3 TIMES DAILY
     Route: 048
  8. LORAZEPAM [Interacting]
     Active Substance: LORAZEPAM
     Dosage: 1 MILLIGRAM
     Route: 048
  9. LORAZEPAM [Interacting]
     Active Substance: LORAZEPAM
     Dosage: 1 MILLIGRAM
     Route: 042
  10. FLUOROURACIL [Concomitant]
     Active Substance: FLUOROURACIL
     Indication: Pancreatic carcinoma
     Dosage: 2000 MG/M2 OVER 46 HOURS
     Route: 042
  11. FLUOROURACIL [Concomitant]
     Active Substance: FLUOROURACIL
     Dosage: 2000 MG/M2 OVER 46 HOURS
     Route: 042
  12. OXALIPLATIN [Concomitant]
     Active Substance: OXALIPLATIN
     Indication: Pancreatic carcinoma
     Dosage: 60 MG/M2 OVER 2 HOURS
     Route: 042
  13. OXALIPLATIN [Concomitant]
     Active Substance: OXALIPLATIN
     Dosage: 60 MG/M2 OVER 2 HOURS
     Route: 042
  14. LEUCOVORIN [Concomitant]
     Active Substance: LEUCOVORIN\LEUCOVORIN CALCIUM
     Indication: Pancreatic carcinoma
     Dosage: UNK
     Route: 065

REACTIONS (7)
  - Respiratory depression [Recovered/Resolved]
  - Hypotension [Recovered/Resolved]
  - Delirium [Recovered/Resolved]
  - Toxicity to various agents [Recovered/Resolved]
  - Drug interaction [Recovered/Resolved]
  - Off label use [Unknown]
  - Unresponsive to stimuli [Recovered/Resolved]
